FAERS Safety Report 7668943-3 (Version None)
Quarter: 2011Q3

REPORT INFORMATION
  Report Type: 
  Country: None (occurrence: None)
  Receive Date: 20110808
  Receipt Date: 20110801
  Transmission Date: 20111222
  Serious: Yes (Hospitalization)
  Sender: FDA-Public Use
  Company Number: US-GLAXOSMITHKLINE-A0939279A

PATIENT
  Sex: Male

DRUGS (8)
  1. CALCIUM + VITAMIN D [Concomitant]
  2. REQUIP [Concomitant]
  3. REQUIP XL [Suspect]
     Indication: PARKINSON'S DISEASE
     Dosage: 2MG PER DAY
     Route: 048
     Dates: start: 20110620, end: 20110704
  4. MULTI-VITAMIN [Concomitant]
  5. NASONEX [Concomitant]
  6. GLUCOSAMINE [Concomitant]
  7. AMANTADINE HCL [Concomitant]
  8. CLONAZEPAM [Concomitant]

REACTIONS (6)
  - LIVER FUNCTION TEST ABNORMAL [None]
  - RENAL FUNCTION TEST ABNORMAL [None]
  - FLUID RETENTION [None]
  - ILL-DEFINED DISORDER [None]
  - WOUND [None]
  - SWELLING [None]
